FAERS Safety Report 8286365-1 (Version None)
Quarter: 2012Q2

REPORT INFORMATION
  Report Type: 
  Country: None (occurrence: None)
  Receive Date: 20120411
  Receipt Date: 20120411
  Transmission Date: 20120825
  Serious: Yes (Other)
  Sender: FDA-Public Use
  Company Number: None

PATIENT
  Sex: Female
  Weight: 69.4003 kg

DRUGS (2)
  1. EQUATE ADULT TUSSIN DM 8 FL OZ BOTTLE [Suspect]
     Indication: NASOPHARYNGITIS
     Dosage: 1 TSP
     Dates: start: 20120309
  2. EQUATE ADULT TUSSIN DM 8 FL OZ BOTTLE [Suspect]
     Indication: COUGH
     Dosage: 1 TSP
     Dates: start: 20120309

REACTIONS (2)
  - BURNING SENSATION [None]
  - ORAL DISCOMFORT [None]
